FAERS Safety Report 10060735 (Version 1)
Quarter: 2014Q2

REPORT INFORMATION
  Report Type: Spontaneous
  Country: US (occurrence: US)
  Receive Date: 20140404
  Receipt Date: 20140404
  Transmission Date: 20141212
  Serious: Yes (Other)
  Sender: FDA-Public Use
  Company Number: US-ELI_LILLY_AND_COMPANY-US201404000289

PATIENT
  Age: 73 Year
  Sex: Female
  Weight: 88.44 kg

DRUGS (7)
  1. CYMBALTA [Suspect]
     Indication: PRODUCT USED FOR UNKNOWN INDICATION
     Dosage: 30 MG, QD
     Route: 048
  2. LUNESTA [Suspect]
     Indication: INSOMNIA
     Dosage: 2 MG, EACH EVENING
     Route: 048
     Dates: start: 201301, end: 201401
  3. NEURONTIN [Suspect]
     Indication: PRODUCT USED FOR UNKNOWN INDICATION
     Dosage: 300 MG, QD
     Route: 048
  4. SYNTHROID [Concomitant]
     Dosage: UNK
  5. ESTRADIOL [Concomitant]
     Dosage: UNK
  6. PRILOSEC                           /00661201/ [Concomitant]
     Dosage: UNK
  7. TRIAMTERENE [Concomitant]
     Dosage: UNK

REACTIONS (8)
  - Gallbladder disorder [Unknown]
  - Oral mucosal exfoliation [Recovering/Resolving]
  - Lip exfoliation [Recovering/Resolving]
  - Tongue exfoliation [Recovering/Resolving]
  - Burning mouth syndrome [Recovering/Resolving]
  - Aphthous stomatitis [Recovering/Resolving]
  - Dry mouth [Recovering/Resolving]
  - Mouth ulceration [Recovering/Resolving]
